FAERS Safety Report 5728647-0 (Version None)
Quarter: 2008Q2

REPORT INFORMATION
  Report Type: 
  Country: None (occurrence: None)
  Receive Date: 20080506
  Receipt Date: 20080423
  Transmission Date: 20081010
  Serious: Yes (Other)
  Sender: FDA-Public Use
  Company Number: DE-GENENTECH-259137

PATIENT
  Age: 59 Year
  Sex: Female

DRUGS (3)
  1. HERCEPTIN [Suspect]
     Indication: BREAST CANCER
     Dosage: 616 MG, Q3W
     Dates: start: 20080108, end: 20080401
  2. HERCEPTIN [Suspect]
     Dosage: 462 MG, Q3W
     Dates: start: 20080129, end: 20080311
  3. MARCUMAR [Concomitant]
     Indication: DRUG USE FOR UNKNOWN INDICATION

REACTIONS (1)
  - EXTREMITY NECROSIS [None]
